FAERS Safety Report 9203696 (Version 1)
Quarter: 2013Q2

REPORT INFORMATION
  Report Type: Report from Study
  Country: US (occurrence: US)
  Receive Date: 20130402
  Receipt Date: 20130402
  Transmission Date: 20140414
  Serious: Yes (Other)
  Sender: FDA-Public Use
  Company Number: US-ASTELLAS-2013US003515

PATIENT
  Sex: Male

DRUGS (1)
  1. ERLOTINIB TABLET [Suspect]
     Indication: PRODUCT USED FOR UNKNOWN INDICATION
     Dosage: UNK
     Route: 065

REACTIONS (5)
  - Balance disorder [Unknown]
  - Fall [Unknown]
  - Hip fracture [Unknown]
  - Hand fracture [Unknown]
  - Haemorrhage [Unknown]
